FAERS Safety Report 24000474 (Version 1)
Quarter: 2024Q2

REPORT INFORMATION
  Report Type: Report from Study
  Country: KR (occurrence: KR)
  Receive Date: 20240621
  Receipt Date: 20240621
  Transmission Date: 20240716
  Serious: Yes (Hospitalization, Other)
  Sender: FDA-Public Use
  Company Number: KR-BR-2024-0071

PATIENT
  Age: 58 Year
  Sex: Male
  Weight: 74.5 kg

DRUGS (11)
  1. LURBINECTEDIN [Suspect]
     Active Substance: LURBINECTEDIN
     Indication: Small cell lung cancer
     Dosage: 3.2 MILLIGRAM/SQ. METER, Q3W
     Route: 042
     Dates: start: 20240213, end: 20240213
  2. FENTADUR [Concomitant]
     Indication: Back pain
     Dosage: 25 MICROGRAM, Q72H
     Dates: start: 20230817
  3. NALOXONE HYDROCHLORIDE\OXYCODONE HYDROCHLORIDE [Concomitant]
     Active Substance: NALOXONE HYDROCHLORIDE\OXYCODONE HYDROCHLORIDE
     Indication: Bone pain
     Dosage: 1 DOSAGE FORM, BID
     Route: 048
     Dates: start: 20240130
  4. CELEBREX [Concomitant]
     Active Substance: CELECOXIB
     Indication: Bone pain
     Dosage: 100 MILLIGRAM, BID
     Route: 048
     Dates: start: 20231115
  5. PANTOPRAZOLE SODIUM [Concomitant]
     Active Substance: PANTOPRAZOLE SODIUM
     Indication: Gastritis prophylaxis
     Dosage: 20 MILLIGRAM, QD
     Route: 048
     Dates: start: 20231115
  6. MAGNESIUM HYDROXIDE [Concomitant]
     Active Substance: MAGNESIUM HYDROXIDE
     Indication: Prophylaxis
     Dosage: 1000 MILLIGRAM, BID
     Route: 048
     Dates: start: 20230830
  7. EPERISONE HYDROCHLORIDE [Concomitant]
     Active Substance: EPERISONE HYDROCHLORIDE
     Indication: Back pain
     Dosage: 50 MILLIGRAM, Q8H
     Route: 048
     Dates: start: 20231207
  8. LEXAPRO [Concomitant]
     Active Substance: ESCITALOPRAM OXALATE
     Indication: Panic disorder
     Dosage: 0.5 MILLIGRAM, QD
     Route: 048
     Dates: start: 20240130
  9. SYNTHROID [Concomitant]
     Active Substance: LEVOTHYROXINE SODIUM
     Indication: Hypothyroidism
     Dosage: 100 MICROGRAM, QD
     Route: 048
     Dates: start: 20240205
  10. YUHAN DEXAMETHASONE DISODIUM PHOSPHATE [Concomitant]
     Indication: Asthenia
     Dosage: 5 MILLIGRAM, QD
     Route: 042
     Dates: start: 20240306
  11. ZOFRAN [Concomitant]
     Active Substance: ONDANSETRON HYDROCHLORIDE
     Indication: Prophylaxis of nausea and vomiting
     Dosage: 8 MILLIGRAM, QD
     Route: 048
     Dates: start: 20240213

REACTIONS (1)
  - Pericardial effusion [Recovered/Resolved]

NARRATIVE: CASE EVENT DATE: 20240312
